FAERS Safety Report 10179460 (Version 2)
Quarter: 2014Q4

REPORT INFORMATION
  Report Type: Spontaneous
  Country: US (occurrence: None)
  Receive Date: 20140515
  Receipt Date: 20141027
  Transmission Date: 20150528
  Serious: Yes (Hospitalization)
  Sender: FDA-Public Use
  Company Number: 2014-US-005464

PATIENT
  Age: 31 Year
  Sex: Female
  Weight: 86.2 kg

DRUGS (9)
  1. XYREM [Suspect]
     Active Substance: SODIUM OXYBATE
     Indication: CATAPLEXY
     Route: 048
     Dates: start: 201309, end: 201403
  2. SYNTHROID(LEVOTHYROXINE SODIUM) [Concomitant]
  3. FANAPT(LLOPERIDONE) [Concomitant]
  4. LUNESTA [Concomitant]
     Active Substance: ESZOPICLONE
  5. ZOLOFT(SERTRALINE HYDROCHLORIDE) [Concomitant]
  6. NEURONTIN(GABAPENTIN) [Concomitant]
  7. ATIVAN(LORAZEPAM) [Concomitant]
  8. XYREM [Suspect]
     Active Substance: SODIUM OXYBATE
     Indication: NARCOLEPSY
     Route: 048
     Dates: start: 201309, end: 201403
  9. LAMICTAL(LAMOTRIGINE) [Concomitant]

REACTIONS (4)
  - Therapy cessation [None]
  - Insomnia [None]
  - Mania [None]
  - Economic problem [None]

NARRATIVE: CASE EVENT DATE: 201403
